FAERS Safety Report 25860063 (Version 1)
Quarter: 2025Q3

REPORT INFORMATION
  Report Type: Spontaneous
  Country: US (occurrence: US)
  Receive Date: 20250929
  Receipt Date: 20250929
  Transmission Date: 20251021
  Serious: Yes (Death, Hospitalization)
  Sender: AMGEN
  Company Number: US-AMGEN-USASP2025190026

PATIENT
  Age: 33 Year
  Sex: Male

DRUGS (13)
  1. PREDNISONE [Suspect]
     Active Substance: PREDNISONE
     Indication: Anaplastic large cell lymphoma T- and null-cell types
     Route: 065
  2. CYCLOPHOSPHAMIDE [Concomitant]
     Active Substance: CYCLOPHOSPHAMIDE
     Indication: Anaplastic large cell lymphoma T- and null-cell types
  3. DOXORUBICIN [Concomitant]
     Active Substance: DOXORUBICIN
     Indication: Anaplastic large cell lymphoma T- and null-cell types
  4. VINCRISTINE [Concomitant]
     Active Substance: VINCRISTINE
     Indication: Anaplastic large cell lymphoma T- and null-cell types
     Route: 065
  5. VANCOMYCIN [Concomitant]
     Active Substance: VANCOMYCIN
     Route: 065
  6. CEFTRIAXONE [Concomitant]
     Active Substance: CEFTRIAXONE
  7. MEROPENEM [Concomitant]
     Active Substance: MEROPENEM
  8. RIFAMPIN [Concomitant]
     Active Substance: RIFAMPIN
  9. ISONIAZID [Concomitant]
     Active Substance: ISONIAZID
  10. PYRAZINAMIDE [Concomitant]
     Active Substance: PYRAZINAMIDE
  11. AMPHOTERICIN B [Concomitant]
     Active Substance: AMPHOTERICIN B
  12. TIGECYCLINE [Concomitant]
     Active Substance: TIGECYCLINE
  13. MICAFUNGIN [Concomitant]
     Active Substance: MICAFUNGIN SODIUM

REACTIONS (3)
  - Illness [Fatal]
  - Septic shock [Unknown]
  - Asthenia [Unknown]
